FAERS Safety Report 9232975 (Version 1)
Quarter: 2013Q2

REPORT INFORMATION
  Report Type: Spontaneous
  Country: FR (occurrence: None)
  Receive Date: 20130412
  Receipt Date: 20130412
  Transmission Date: 20140414
  Serious: Yes (Hospitalization)
  Sender: FDA-Public Use
  Company Number: FK201301119

PATIENT
  Age: 20 Year
  Sex: Female

DRUGS (5)
  1. LEVETIRACETAM [Suspect]
     Indication: PRODUCT USED FOR UNKNOWN INDICATION
  2. FOLIC ACID [Suspect]
     Indication: PRODUCT USED FOR UNKNOWN INDICATION
  3. LOXAPINE [Suspect]
     Indication: PRODUCT USED FOR UNKNOWN INDICATION
  4. TOPICAL SULFADIAZINE [Suspect]
     Indication: PRODUCT USED FOR UNKNOWN INDICATION
  5. IRON [Suspect]
     Indication: PRODUCT USED FOR UNKNOWN INDICATION

REACTIONS (1)
  - Toxic epidermal necrolysis [None]
